FAERS Safety Report 4532048-0 (Version None)
Quarter: 2004Q4

REPORT INFORMATION
  Report Type: 
  Country: None (occurrence: None)
  Receive Date: 20041220
  Receipt Date: 20041210
  Transmission Date: 20050328
  Serious: Yes (Hospitalization)
  Sender: FDA-Public Use
  Company Number: NO-GLAXOSMITHKLINE-B0361822A

PATIENT
  Age: 53 Year
  Sex: Female

DRUGS (21)
  1. AVANDIA [Suspect]
     Dosage: 8MG PER DAY
     Route: 048
     Dates: start: 20041107, end: 20041110
  2. SINGULAIR [Concomitant]
     Route: 048
  3. VITAMIN B-12 [Concomitant]
     Route: 030
  4. VENTOLIN [Concomitant]
     Route: 065
  5. LIVOSTIN [Concomitant]
     Route: 047
  6. HIPREX [Concomitant]
     Route: 048
  7. LIPITOR [Concomitant]
     Route: 048
  8. NEO-MERCAZOLE TAB [Concomitant]
     Route: 048
  9. GLUCOPHAGE [Concomitant]
     Route: 048
  10. AMARYL [Concomitant]
     Route: 048
  11. ZESTRIL [Concomitant]
     Route: 048
  12. BURINEX [Concomitant]
     Route: 048
  13. IMDUR [Concomitant]
     Route: 048
  14. KALEORID [Concomitant]
     Route: 048
  15. LIVOSTIN [Concomitant]
     Route: 045
  16. LOKILAN [Concomitant]
     Route: 045
  17. ATROVENT [Concomitant]
     Route: 055
  18. ZYRTEC [Concomitant]
     Route: 048
  19. CARDIZEM [Concomitant]
     Route: 048
  20. INSULIN ACTRAPID [Concomitant]
     Route: 058
  21. INSULIN INSULATARD NPH NORDISK [Concomitant]
     Route: 058

REACTIONS (5)
  - ABDOMINAL PAIN UPPER [None]
  - DIARRHOEA [None]
  - ILEUS [None]
  - NAUSEA [None]
  - VOMITING [None]
